FAERS Safety Report 24308745 (Version 1)
Quarter: 2024Q3

REPORT INFORMATION
  Report Type: Spontaneous
  Country: AR (occurrence: AR)
  Receive Date: 20240911
  Receipt Date: 20240911
  Transmission Date: 20241017
  Serious: No
  Sender: PFIZER
  Company Number: AR-PFIZER INC-202400250058

PATIENT
  Age: 13 Year
  Sex: Male

DRUGS (1)
  1. GENOTROPIN [Suspect]
     Active Substance: SOMATROPIN
     Dosage: 7 TIMES PER WEEK

REACTIONS (2)
  - Device use error [Unknown]
  - Device physical property issue [Unknown]
